FAERS Safety Report 12287159 (Version 2)
Quarter: 2016Q2

REPORT INFORMATION
  Report Type: Spontaneous
  Country: US (occurrence: US)
  Receive Date: 20160420
  Receipt Date: 20160518
  Transmission Date: 20160815
  Serious: Yes (Other)
  Sender: FDA-Public Use
  Company Number: US-PFIZER INC-2016216758

PATIENT
  Age: 78 Year
  Sex: Female

DRUGS (1)
  1. COLESTID [Suspect]
     Active Substance: COLESTIPOL HYDROCHLORIDE
     Indication: BLOOD CHOLESTEROL ABNORMAL
     Dosage: 1 G, 1X/DAY
     Route: 048
     Dates: start: 20160503

REACTIONS (1)
  - Cerebrovascular accident [Unknown]
